FAERS Safety Report 23146052 (Version 1)
Quarter: 2023Q4

REPORT INFORMATION
  Report Type: Spontaneous
  Country: FR (occurrence: FR)
  Receive Date: 20231104
  Receipt Date: 20231104
  Transmission Date: 20240110
  Serious: Yes (Other)
  Sender: FDA-Public Use
  Company Number: None

PATIENT
  Age: 34 Year
  Sex: Male

DRUGS (5)
  1. TEGRETOL [Suspect]
     Active Substance: CARBAMAZEPINE
     Indication: Epilepsy
     Dosage: 1 DOSAGE FORM (DATE DEBUT: AU LONG COURS)
     Route: 065
     Dates: end: 20230831
  2. HALDOL [Suspect]
     Active Substance: HALOPERIDOL
     Indication: Mental disorder
     Dosage: 1 DOSAGE FORM (LP) (TOTAL)
     Route: 065
     Dates: start: 20230821, end: 20230821
  3. ZUCLOPENTHIXOL [Suspect]
     Active Substance: ZUCLOPENTHIXOL
     Indication: Mental disorder
     Dosage: 6 DOSAGE FORM (TOTAL)
     Route: 065
     Dates: start: 20230828, end: 20230828
  4. LITHIUM [Suspect]
     Active Substance: LITHIUM
     Indication: Mental disorder
     Dosage: 1 DOSAGE FORM
     Route: 065
     Dates: start: 20230828, end: 20230902
  5. VALIUM [Suspect]
     Active Substance: DIAZEPAM
     Indication: Mental disorder
     Dosage: 60 DRP, QD (AU LONG COURSDIMINUTION DE DOSE 45 GOUTTES 3X PAR JOUR A 20 GOUTTES 3X PAR JOUR)
     Route: 065

REACTIONS (3)
  - Tremor [Not Recovered/Not Resolved]
  - Withdrawal syndrome [Not Recovered/Not Resolved]
  - Fatigue [Not Recovered/Not Resolved]

NARRATIVE: CASE EVENT DATE: 20230902
